FAERS Safety Report 19145844 (Version 1)
Quarter: 2021Q2

REPORT INFORMATION
  Report Type: Spontaneous
  Country: US (occurrence: US)
  Receive Date: 20210416
  Receipt Date: 20210416
  Transmission Date: 20210717
  Serious: Yes (Death)
  Sender: FDA-Public Use
  Company Number: None

PATIENT
  Age: 62 Year
  Sex: Male
  Weight: 86.4 kg

DRUGS (14)
  1. DABIGATRAN [Concomitant]
     Active Substance: DABIGATRAN
  2. LISNOPRIL [Concomitant]
  3. METHADONE [Concomitant]
     Active Substance: METHADONE HYDROCHLORIDE
  4. AMLODIPINE [Concomitant]
     Active Substance: AMLODIPINE BESYLATE
  5. PREDNISONE. [Concomitant]
     Active Substance: PREDNISONE
  6. TYLENOL [Concomitant]
     Active Substance: ACETAMINOPHEN
  7. HYDROMORPHONE [Concomitant]
     Active Substance: HYDROMORPHONE
  8. OXYBUTYNIN. [Concomitant]
     Active Substance: OXYBUTYNIN CHLORIDE
  9. FAMOTIDINE. [Concomitant]
     Active Substance: FAMOTIDINE
  10. SENNOSIDES. [Concomitant]
     Active Substance: SENNOSIDES
  11. GABPENTIN [Concomitant]
  12. ABIRATERONE. [Suspect]
     Active Substance: ABIRATERONE ACETATE
     Indication: PROSTATE CANCER
     Route: 048
     Dates: start: 20200707, end: 20210120
  13. LIDOCAINE. [Concomitant]
     Active Substance: LIDOCAINE
  14. DULOXETINE. [Concomitant]
     Active Substance: DULOXETINE

REACTIONS (1)
  - Death [None]

NARRATIVE: CASE EVENT DATE: 20210414
